FAERS Safety Report 25309855 (Version 2)
Quarter: 2025Q2

REPORT INFORMATION
  Report Type: Spontaneous
  Country: US (occurrence: US)
  Receive Date: 20250514
  Receipt Date: 20250519
  Transmission Date: 20250716
  Serious: No
  Sender: LUPIN
  Company Number: US-LUPIN PHARMACEUTICALS INC.-2025-03957

PATIENT
  Age: 76 Year
  Weight: 95.238 kg

DRUGS (1)
  1. TIOTROPIUM BROMIDE [Suspect]
     Active Substance: TIOTROPIUM BROMIDE
     Indication: Chronic obstructive pulmonary disease
     Dosage: 1 DOSAGE FORM, QD (ONE CAPSULE ONCE A DAY)

REACTIONS (6)
  - Circumstance or information capable of leading to medication error [Unknown]
  - Wrong technique in product usage process [Unknown]
  - Device defective [Unknown]
  - Product size issue [Unknown]
  - Device mechanical issue [Unknown]
  - No adverse event [Unknown]
